FAERS Safety Report 9039462 (Version 1)
Quarter: 2013Q1

REPORT INFORMATION
  Report Type: Spontaneous
  Country: US (occurrence: None)
  Receive Date: 20130123
  Receipt Date: 20130123
  Transmission Date: 20140127
  Serious: No
  Sender: FDA-Public Use
  Company Number: None

PATIENT
  Sex: Male
  Weight: 51.26 kg

DRUGS (1)
  1. XOPENEX [Suspect]

REACTIONS (3)
  - Hypercholesterolaemia [None]
  - Heart rate increased [None]
  - Product substitution issue [None]
